FAERS Safety Report 11694919 (Version 2)
Quarter: 2015Q4

REPORT INFORMATION
  Report Type: Spontaneous
  Country: US (occurrence: US)
  Receive Date: 20151103
  Receipt Date: 20151224
  Transmission Date: 20160304
  Serious: Yes (Other)
  Sender: FDA-Public Use
  Company Number: PHHY2015US104707

PATIENT
  Age: 54 Year
  Sex: Male

DRUGS (20)
  1. MYLANTA [Suspect]
     Active Substance: ALUMINUM HYDROXIDE\DIMETHICONE\MAGNESIUM HYDROXIDE
     Indication: PRODUCT USED FOR UNKNOWN INDICATION
     Dosage: UNK UNK, PRN (200-2000-20 MG/5 ML GIVE 30 ML VIA GASTRIC TUBE
     Route: 065
  2. NOVOLIN N [Suspect]
     Active Substance: INSULIN HUMAN
     Indication: PRODUCT USED FOR UNKNOWN INDICATION
     Dosage: UNK UNK, BID SUBCUTANEOUS SUSPENSION (17 UNITS SC)
     Route: 058
  3. IPRATROPIUM BROMIDE/ALBUTEROL SULFATE [Suspect]
     Active Substance: ALBUTEROL SULFATE\IPRATROPIUM BROMIDE
     Indication: PRODUCT USED FOR UNKNOWN INDICATION
     Dosage: 0.5-2.5 (3) MG/3ML INHALATION SOLUTION,
     Route: 065
  4. LIORESAL [Suspect]
     Active Substance: BACLOFEN
     Indication: MUSCLE SPASTICITY
     Dosage: APPROXIMATELY 100 TO 101 UG DAILY (CONCENTRATION 2000 MCG/ML))
     Route: 037
  5. LIORESAL [Suspect]
     Active Substance: BACLOFEN
     Indication: BRAIN INJURY
     Dosage: 500 UG, QD (CONCENTRATION 500 MCG/ML)
     Route: 037
     Dates: end: 20151214
  6. ACIDOPHILUS [Suspect]
     Active Substance: LACTOBACILLUS ACIDOPHILUS
     Indication: PRODUCT USED FOR UNKNOWN INDICATION
     Dosage: 1 DF, BID GASTRIC TUBE
     Route: 048
  7. POTASSIUM CHLORIDE. [Suspect]
     Active Substance: POTASSIUM CHLORIDE
     Indication: PRODUCT USED FOR UNKNOWN INDICATION
     Dosage: UNK BID, MEQ/15 ML (10 %) LIQD (POTASSIUM CHLORIDE 20% ADMINISTER 7.5 ML = 20 MEQ GASTRIC TUBE
     Route: 065
  8. TUSSIN CF [Suspect]
     Active Substance: DEXTROMETHORPHAN HYDROBROMIDE\GUAIFENESIN\PHENYLEPHRINE HYDROCHLORIDE
     Indication: PRODUCT USED FOR UNKNOWN INDICATION
     Route: 065
  9. LIORESAL [Suspect]
     Active Substance: BACLOFEN
     Indication: HEAD INJURY
     Dosage: 300 UG, QD (CONCENTRATION 2000 MCG/ML)
     Route: 037
  10. CEFPODOXIME PROXETIL. [Suspect]
     Active Substance: CEFPODOXIME PROXETIL
     Indication: PRODUCT USED FOR UNKNOWN INDICATION
     Dosage: UNK
     Route: 048
  11. FAMOTIDINE TABLETS USP [Suspect]
     Active Substance: FAMOTIDINE
     Indication: PRODUCT USED FOR UNKNOWN INDICATION
     Dosage: UNK UNK, BID 40 MG/5 ML ADMINISTER: 20 MG/2.5 ML VIA G TUBE
     Route: 048
  12. PROTONIX [Suspect]
     Active Substance: PANTOPRAZOLE SODIUM
     Indication: PRODUCT USED FOR UNKNOWN INDICATION
     Dosage: UNK UNK, BID (1 PACKET = 40 MG VIA GASTRIC TUBE
     Route: 048
  13. METOCLOPRAMIDE. [Suspect]
     Active Substance: METOCLOPRAMIDE
     Indication: PRODUCT USED FOR UNKNOWN INDICATION
     Dosage: UNK
     Route: 048
  14. CHLORHEXIDINE GLUCONATE. [Suspect]
     Active Substance: CHLORHEXIDINE GLUCONATE
     Indication: PRODUCT USED FOR UNKNOWN INDICATION
     Dosage: UNK UNK, BID MOUTH/THROAT SOLUTION (0.5 OX/TEETH AND GUMS)
     Route: 048
  15. GUAIFENESIN. [Suspect]
     Active Substance: GUAIFENESIN
     Indication: PRODUCT USED FOR UNKNOWN INDICATION
     Dosage: 10 ML, GASTRIC TUBE EVERY 6 HOURS
     Route: 065
  16. VITAMIN C [Suspect]
     Active Substance: ASCORBIC ACID
     Indication: PRODUCT USED FOR UNKNOWN INDICATION
     Dosage: 1 DF, BID VIA GASTRIC TUBE
     Route: 048
  17. METOPROLOL [Suspect]
     Active Substance: METOPROLOL
     Indication: PRODUCT USED FOR UNKNOWN INDICATION
     Dosage: UNK UNK, BID (25 MG 3 TABS = 75 MG VIA GASTRIC TUBE)
     Route: 048
  18. SIMVASTATIN. [Suspect]
     Active Substance: SIMVASTATIN
     Indication: PRODUCT USED FOR UNKNOWN INDICATION
     Route: 048
  19. DILANTIN [Suspect]
     Active Substance: PHENYTOIN
     Indication: PRODUCT USED FOR UNKNOWN INDICATION
     Dosage: UNK (1.25 MG/5 ML, ADMINISTER 200 MG = 8 ML; VIN GASTRIC TUBE IN PM) AND (125 MG/5 ML; 150 MG 6 ML
     Route: 065
  20. LEVETIRACETAM. [Suspect]
     Active Substance: LEVETIRACETAM
     Indication: PRODUCT USED FOR UNKNOWN INDICATION
     Dosage: UNK UNK, BID (1000 MG 10 ML VIA GASTRIC TUBE
     Route: 065

REACTIONS (4)
  - Drug hypersensitivity [Unknown]
  - No therapeutic response [Unknown]
  - Acute respiratory distress syndrome [Unknown]
  - Apallic syndrome [Unknown]

NARRATIVE: CASE EVENT DATE: 20090714
